FAERS Safety Report 24007311 (Version 2)
Quarter: 2024Q2

REPORT INFORMATION
  Report Type: Report from Study
  Country: KR (occurrence: KR)
  Receive Date: 20240624
  Receipt Date: 20240628
  Transmission Date: 20240716
  Serious: Yes (Hospitalization)
  Sender: FDA-Public Use
  Company Number: KR-TAKEDA-2024TUS061788

PATIENT
  Age: 46 Year
  Sex: Male
  Weight: 98 kg

DRUGS (26)
  1. VEDOLIZUMAB [Suspect]
     Active Substance: VEDOLIZUMAB
     Indication: Crohn^s disease
     Dosage: 300 MILLIGRAM
     Route: 042
     Dates: start: 20240612
  2. Duoclin [Concomitant]
     Dosage: 7.5 MILLILITER, BID
     Route: 026
     Dates: start: 20240612
  3. TREIN [Concomitant]
     Dosage: 10 MILLIGRAM, QD
     Route: 048
     Dates: start: 20240612
  4. MONTERIZINE [Concomitant]
     Dosage: UNK, QD
     Route: 048
     Dates: start: 20240612
  5. SERTACONAZOLE NITRATE [Concomitant]
     Active Substance: SERTACONAZOLE NITRATE
     Dosage: 15 MILLIGRAM, BID
     Route: 026
     Dates: start: 20240612
  6. DESOWEN [Concomitant]
     Active Substance: DESONIDE
     Dosage: 120 MILLILITER
     Route: 026
     Dates: start: 20240612
  7. CORFORGE [Concomitant]
     Dosage: UNK, QD
     Route: 048
     Dates: start: 20230208
  8. Feroba you sr [Concomitant]
     Dosage: UNK, BID
     Route: 048
     Dates: start: 20230208
  9. Dong a perdipine [Concomitant]
     Dosage: 30 MILLIGRAM
     Route: 042
     Dates: start: 20240618
  10. AMINO ACIDS\DEXTROSE\ELECTROLYTES NOS\SOYBEAN OIL [Concomitant]
     Active Substance: AMINO ACIDS\DEXTROSE\ELECTROLYTES NOS\SOYBEAN OIL
     Indication: Nutritional supplementation
     Dosage: 1448 MILLILITER
     Route: 042
     Dates: start: 20240618
  11. PENIRAMIN [Concomitant]
     Indication: Prophylaxis
     Dosage: UNK
     Route: 042
     Dates: start: 20240618
  12. HARMONILAN [Concomitant]
     Indication: Nutritional supplementation
     Dosage: 200 MILLILITER
     Route: 048
     Dates: start: 20240619
  13. CALCIUM CARBONATE\CHOLECALCIFEROL [Concomitant]
     Active Substance: CALCIUM CARBONATE\CHOLECALCIFEROL
     Indication: Prophylaxis
     Dosage: UNK, QD
     Route: 048
     Dates: start: 20240619
  14. NEXIUM [Concomitant]
     Active Substance: ESOMEPRAZOLE MAGNESIUM
     Indication: Prophylaxis
     Dosage: UNK
     Route: 042
     Dates: start: 20240619
  15. Esomezol [Concomitant]
     Indication: Prophylaxis
     Dosage: 20 MILLIGRAM, QD
     Route: 048
     Dates: start: 20240619
  16. HUMIRA [Concomitant]
     Active Substance: ADALIMUMAB
     Dosage: 160 MILLIGRAM
     Route: 058
     Dates: start: 20141121, end: 20141121
  17. HUMIRA [Concomitant]
     Active Substance: ADALIMUMAB
     Dosage: 80 MILLIGRAM
     Route: 058
     Dates: start: 20141209, end: 20141209
  18. HUMIRA [Concomitant]
     Active Substance: ADALIMUMAB
     Dosage: 40 MILLIGRAM, Q2WEEKS
     Route: 058
     Dates: start: 20141223
  19. INFLIXIMAB [Concomitant]
     Active Substance: INFLIXIMAB
     Dosage: 1000 MILLIGRAM
     Route: 042
     Dates: start: 20170318, end: 20220914
  20. INFLIXIMAB [Concomitant]
     Active Substance: INFLIXIMAB
     Dosage: 120 MILLIGRAM, Q2WEEKS
     Route: 058
     Dates: start: 20230111
  21. STELARA [Concomitant]
     Active Substance: USTEKINUMAB
     Dosage: 520 MILLIGRAM
     Route: 042
     Dates: start: 20230222, end: 20230222
  22. STELARA [Concomitant]
     Active Substance: USTEKINUMAB
     Dosage: 90 MILLIGRAM
     Route: 058
     Dates: start: 20230419, end: 20230419
  23. STELARA [Concomitant]
     Active Substance: USTEKINUMAB
     Dosage: 90 MILLIGRAM
     Route: 058
     Dates: start: 20230802
  24. RINVOQ [Concomitant]
     Active Substance: UPADACITINIB
     Dosage: 300 MILLIGRAM, QD
     Route: 048
     Dates: start: 20240508, end: 20240604
  25. RINVOQ [Concomitant]
     Active Substance: UPADACITINIB
     Dosage: 15 MILLIGRAM, QD
     Route: 048
     Dates: start: 20240508
  26. PREDNISOLONE [Concomitant]
     Active Substance: PREDNISOLONE
     Indication: Abdominal pain
     Dosage: 300 MILLIGRAM, QD
     Route: 048
     Dates: start: 20240619

REACTIONS (1)
  - Abdominal pain [Recovered/Resolved]

NARRATIVE: CASE EVENT DATE: 20240617
